FAERS Safety Report 9043365 (Version 1)
Quarter: 2013Q1

REPORT INFORMATION
  Report Type: Report from Study
  Country: US (occurrence: US)
  Receive Date: 20130129
  Receipt Date: 20130129
  Transmission Date: 20140127
  Serious: No
  Sender: FDA-Public Use
  Company Number: US-ABBOTT-12P-163-0911441-00

PATIENT
  Age: 27 Year
  Sex: Female

DRUGS (11)
  1. HUMIRA 40 MG/ 0.8 ML PRE-FILLED SYRINGE [Suspect]
     Indication: PSORIATIC ARTHROPATHY
     Dates: start: 20120118
  2. CELEBREX [Concomitant]
     Indication: PRODUCT USED FOR UNKNOWN INDICATION
  3. NEXIUM [Concomitant]
     Indication: GASTROOESOPHAGEAL REFLUX DISEASE
  4. ZOFRAN [Concomitant]
     Indication: NAUSEA
  5. CLOBEX [Concomitant]
     Indication: PSORIASIS
  6. METROGEL [Concomitant]
     Indication: DERMATITIS
  7. METROGEL [Concomitant]
     Indication: ROSACEA
  8. HYOMAX DT [Concomitant]
     Indication: ABDOMINAL PAIN UPPER
  9. EPIDUO [Concomitant]
     Indication: ANTIBIOTIC THERAPY
  10. EPIDUO [Concomitant]
     Indication: ACNE
  11. EPIDUO [Concomitant]
     Indication: ROSACEA

REACTIONS (6)
  - Middle ear effusion [Not Recovered/Not Resolved]
  - Pharyngeal inflammation [Not Recovered/Not Resolved]
  - Pharyngeal disorder [Not Recovered/Not Resolved]
  - Upper-airway cough syndrome [Not Recovered/Not Resolved]
  - Injection site pain [Not Recovered/Not Resolved]
  - Incorrect dose administered [Unknown]
